FAERS Safety Report 6175429-4 (Version None)
Quarter: 2009Q2

REPORT INFORMATION
  Report Type: 
  Country: None (occurrence: None)
  Receive Date: 20090429
  Receipt Date: 20090316
  Transmission Date: 20091009
  Serious: Yes (Other)
  Sender: FDA-Public Use
  Company Number: 97450

PATIENT
  Age: 41 Year
  Sex: Female
  Weight: 97.977 kg

DRUGS (2)
  1. IBUPROFEN TABLETS [Suspect]
     Indication: HEADACHE
     Dosage: 2 TABLETS/3-4X WEEKLY/ORAL
     Route: 048
     Dates: end: 20080601
  2. IBUPROFEN TABLETS [Suspect]
     Indication: HEADACHE
     Dosage: 2 TABLETS/3-4X WEEKLY/ORAL
     Route: 048
     Dates: start: 20080601, end: 20080917

REACTIONS (5)
  - DRUG EXPOSURE DURING PREGNANCY [None]
  - FOETAL DISORDER [None]
  - HEART RATE IRREGULAR [None]
  - MATERNAL DRUGS AFFECTING FOETUS [None]
  - WEIGHT INCREASED [None]
